FAERS Safety Report 7427063-3 (Version None)
Quarter: 2011Q2

REPORT INFORMATION
  Report Type: 
  Country: None (occurrence: None)
  Receive Date: 20110420
  Receipt Date: 20110405
  Transmission Date: 20111010
  Serious: Yes (Hospitalization, Disabling)
  Sender: FDA-Public Use
  Company Number: PHHY2011FR32628

PATIENT
  Sex: Female

DRUGS (14)
  1. NEORAL [Suspect]
     Indication: LIVER TRANSPLANT
     Dosage: 45 MG, BID
     Route: 048
  2. CELECTOL [Concomitant]
     Dosage: 200 MG, QD
  3. SODIUM BICARBONATE [Concomitant]
  4. TAHOR [Concomitant]
     Dosage: 10 MG, UNK
  5. PHOSPHATE CHELATOR [Concomitant]
  6. CALCIUM [Concomitant]
  7. ALLOPURINOL [Concomitant]
     Dosage: 200 MG, UNK
  8. CORTANCYL [Concomitant]
     Dosage: 3 MG, UNK
     Dates: start: 20100101
  9. LASIX [Concomitant]
     Dosage: 40 MG, BID
  10. EPOGEN [Concomitant]
  11. MEPRONIZINE [Concomitant]
     Dosage: UNK
  12. XANAX [Concomitant]
     Dosage: 0.5 MG, TID
  13. PLAVIX [Concomitant]
     Dosage: 75 MG, UNK
  14. RED BLOOD CELLS [Concomitant]

REACTIONS (7)
  - NORMOCHROMIC NORMOCYTIC ANAEMIA [None]
  - ASTHENIA [None]
  - RENAL ARTERY STENOSIS [None]
  - RENAL FAILURE [None]
  - BLOOD CREATININE INCREASED [None]
  - THROMBOCYTOPENIA [None]
  - DYSPNOEA EXERTIONAL [None]
